FAERS Safety Report 11166879 (Version 2)
Quarter: 2015Q2

REPORT INFORMATION
  Report Type: Spontaneous
  Country: GB (occurrence: GB)
  Receive Date: 20150605
  Receipt Date: 20150610
  Transmission Date: 20150821
  Serious: Yes (Hospitalization, Other)
  Sender: FDA-Public Use
  Company Number: GB-TEVA-566646ACC

PATIENT
  Age: 78 Year
  Sex: Male
  Weight: 120 kg

DRUGS (5)
  1. HEPARIN LOW MOLECULAR WEIGHT UNSPECIFIED [Concomitant]
     Active Substance: UNSPECIFIED INGREDIENT
     Dosage: CURRENTLY WITHHELD AS PLATELETS BELOW 75
  2. CISPLATIN. [Suspect]
     Active Substance: CISPLATIN
     Dosage: CYCLE 4
     Route: 042
     Dates: start: 20150408
  3. GEMCITABINE [Suspect]
     Active Substance: GEMCITABINE\GEMCITABINE HYDROCHLORIDE
     Dosage: CYCLE 4
     Route: 042
     Dates: start: 20150408
  4. IRBESARTAN. [Concomitant]
     Active Substance: IRBESARTAN
  5. GLICLAZIDE [Concomitant]
     Active Substance: GLICLAZIDE

REACTIONS (3)
  - Blood magnesium decreased [Not Recovered/Not Resolved]
  - Thrombocytopenia [Not Recovered/Not Resolved]
  - Electrolyte imbalance [Not Recovered/Not Resolved]

NARRATIVE: CASE EVENT DATE: 20150427
